FAERS Safety Report 12740772 (Version 1)
Quarter: 2016Q3

REPORT INFORMATION
  Report Type: Spontaneous
  Country: JP (occurrence: JP)
  Receive Date: 20160914
  Receipt Date: 20160914
  Transmission Date: 20161109
  Serious: Yes (Hospitalization, Other)
  Sender: FDA-Public Use
  Company Number: JP-009507513-1609JPN005173

PATIENT
  Sex: Male

DRUGS (6)
  1. LAMIVUDINE. [Concomitant]
     Active Substance: LAMIVUDINE
     Dosage: DAILY DOSAGE UNKNOWN; PERORAL FORMULATION
     Route: 048
  2. INSULIN [Concomitant]
     Active Substance: INSULIN NOS
     Dosage: DAILY DOSAGE UNKNOWN
     Route: 065
  3. EPZICOM [Concomitant]
     Active Substance: ABACAVIR SULFATE\LAMIVUDINE
     Dosage: DAILY DOSAGE UNKNOWN; PERORAL FORMULATION
     Route: 048
  4. ISENTRESS [Suspect]
     Active Substance: RALTEGRAVIR POTASSIUM
     Dosage: DAILY DOSE UNKNOWN
     Route: 048
     Dates: start: 201207
  5. STOCRIN TABLETS 200MG [Concomitant]
     Active Substance: EFAVIRENZ
     Dosage: DAILY DOSE UNKNOWN
     Route: 048
  6. ZIAGEN [Concomitant]
     Active Substance: ABACAVIR SULFATE
     Dosage: DAILY DOSAGE UNKNOWN; PERORAL FORMULATION
     Route: 048

REACTIONS (2)
  - Diabetic ketoacidosis [Unknown]
  - Blood glucose increased [Unknown]

NARRATIVE: CASE EVENT DATE: 201207
